FAERS Safety Report 19516046 (Version 3)
Quarter: 2021Q3

REPORT INFORMATION
  Report Type: Spontaneous
  Country: US (occurrence: US)
  Receive Date: 20210709
  Receipt Date: 20210831
  Transmission Date: 20211014
  Serious: No
  Sender: FDA-Public Use
  Company Number: US-ASTELLAS-2021US019799

PATIENT
  Sex: Female
  Weight: 100 kg

DRUGS (3)
  1. MYRBETRIQ [Suspect]
     Active Substance: MIRABEGRON
     Indication: AUTOMATIC BLADDER
     Dosage: UNK UNK, UNKNOWN FREQ.
     Route: 065
  2. DETROL LA [Suspect]
     Active Substance: TOLTERODINE TARTRATE
     Indication: AUTOMATIC BLADDER
     Dosage: UNK UNK, UNKNOWN FREQ.
     Route: 065
  3. TOVIAZ [Suspect]
     Active Substance: FESOTERODINE FUMARATE
     Indication: AUTOMATIC BLADDER
     Dosage: UNK UNK, UNKNOWN FREQ.
     Route: 065

REACTIONS (4)
  - Nausea [Unknown]
  - Dry mouth [Unknown]
  - Drug ineffective [Unknown]
  - Headache [Unknown]
